FAERS Safety Report 9976426 (Version 1)
Quarter: 2014Q1

REPORT INFORMATION
  Report Type: Report from Study
  Country: US (occurrence: US)
  Receive Date: 20140306
  Receipt Date: 20140306
  Transmission Date: 20141002
  Serious: No
  Sender: FDA-Public Use
  Company Number: US-ABBVIE-13P-163-1164362-00

PATIENT
  Age: 33 Year
  Sex: Male

DRUGS (5)
  1. HUMIRA [Suspect]
     Indication: ANKYLOSING SPONDYLITIS
     Dates: start: 201209
  2. VITAMIN D [Concomitant]
     Indication: PRODUCT USED FOR UNKNOWN INDICATION
     Dosage: 50,000 IU WEEKLY
  3. OMEPRAZOLE [Concomitant]
     Indication: GASTROOESOPHAGEAL REFLUX DISEASE
     Dosage: 40MG DAILY
  4. PERCOCET [Concomitant]
     Indication: PAIN
     Dosage: 5/325 TWICE DAILY
  5. ZOFRAN [Concomitant]
     Indication: NAUSEA
     Dosage: 4MG ONCE DAILY FOR NAUSEA FROM PERCOCET

REACTIONS (1)
  - Injection site pain [Recovered/Resolved]
